FAERS Safety Report 7593581-0 (Version None)
Quarter: 2011Q3

REPORT INFORMATION
  Report Type: 
  Country: None (occurrence: None)
  Receive Date: 20110706
  Receipt Date: 20110620
  Transmission Date: 20111222
  Serious: No
  Sender: FDA-Public Use
  Company Number: US-B.I. PHARMACEUTICALS,INC./RIDGEFIELD-2011-BP-15870BP

PATIENT
  Sex: Male

DRUGS (10)
  1. LISINOPRIL [Concomitant]
     Indication: HYPERTENSION
  2. NIACIN [Concomitant]
     Indication: SUPPLEMENTATION THERAPY
     Dosage: 500 MG
  3. CLEOCIN HYDROCHLORIDE [Concomitant]
     Indication: ACNE
  4. METFORMIN HCL [Concomitant]
     Indication: DIABETES MELLITUS
  5. COREG [Concomitant]
     Indication: HYPERTENSION
  6. SEROQUEL [Concomitant]
     Indication: ANXIETY
  7. PRADAXA [Suspect]
     Indication: ATRIAL FIBRILLATION
     Dosage: 300 MG
     Route: 048
     Dates: start: 20110613, end: 20110619
  8. AMBIEN [Concomitant]
     Indication: INSOMNIA
  9. ATIVAN [Concomitant]
     Indication: ANXIETY
  10. TRIAMCINOLONE [Concomitant]
     Indication: RASH

REACTIONS (4)
  - DEPRESSION [None]
  - NERVOUSNESS [None]
  - ABDOMINAL PAIN UPPER [None]
  - ANXIETY [None]
